FAERS Safety Report 6106901-0 (Version None)
Quarter: 2009Q1

REPORT INFORMATION
  Report Type: 
  Country: None (occurrence: None)
  Receive Date: 20090305
  Receipt Date: 20081230
  Transmission Date: 20090719
  Serious: No
  Sender: FDA-Public Use
  Company Number: ADE# 08-212

PATIENT
  Sex: Male
  Weight: 90.7194 kg

DRUGS (1)
  1. TORSEMIDE [Suspect]
     Indication: DIURETIC THERAPY
     Dosage: 2 TABLETS EVERY 8 HOURS
     Dates: start: 20081226

REACTIONS (4)
  - BALANCE DISORDER [None]
  - DRUG INEFFECTIVE [None]
  - FEELING ABNORMAL [None]
  - MUSCLE SPASMS [None]
